FAERS Safety Report 12218171 (Version 2)
Quarter: 2016Q2

REPORT INFORMATION
  Report Type: Report from Study
  Country: US (occurrence: US)
  Receive Date: 20160329
  Receipt Date: 20160516
  Transmission Date: 20160815
  Serious: Yes (Hospitalization, Other)
  Sender: FDA-Public Use
  Company Number: US-GILEAD-2016-0205331

PATIENT
  Age: 91 Year
  Sex: Female

DRUGS (1)
  1. RANOLAZINE [Suspect]
     Active Substance: RANOLAZINE
     Indication: ANGINA PECTORIS
     Dosage: 500 MG, UNK
     Route: 048

REACTIONS (5)
  - Amnesia [Unknown]
  - Haemorrhagic diathesis [Unknown]
  - Cerebrovascular accident [Recovering/Resolving]
  - Visual acuity reduced [Unknown]
  - Aphonia [Unknown]

NARRATIVE: CASE EVENT DATE: 201511
